FAERS Safety Report 4599880-9 (Version None)
Quarter: 2005Q1

REPORT INFORMATION
  Report Type: 
  Country: None (occurrence: None)
  Receive Date: 20050307
  Receipt Date: 20041025
  Transmission Date: 20050727
  Serious: Yes (Other)
  Sender: FDA-Public Use
  Company Number: JP-MERCK-0410USA03918

PATIENT
  Age: 82 Year
  Sex: Female

DRUGS (8)
  1. PEPCID RPD [Suspect]
     Indication: GASTROINTESTINAL DISORDER
     Route: 048
     Dates: start: 20041016, end: 20041001
  2. CARDENALIN [Concomitant]
     Route: 065
  3. THYRADIN-S [Concomitant]
     Route: 065
  4. TENORMIN [Concomitant]
     Route: 065
  5. ALFAROL [Concomitant]
     Route: 065
  6. SELBEX [Concomitant]
     Route: 065
  7. MUCODYNE [Concomitant]
     Route: 065
  8. [THERAPY UNSPECIFIED] [Concomitant]
     Route: 065

REACTIONS (2)
  - NEPHROTIC SYNDROME [None]
  - PRURITUS GENERALISED [None]
